FAERS Safety Report 18528784 (Version 1)
Quarter: 2020Q4

REPORT INFORMATION
  Report Type: Spontaneous
  Country: TR (occurrence: TR)
  Receive Date: 20201120
  Receipt Date: 20201120
  Transmission Date: 20210114
  Serious: Yes (Other)
  Sender: FDA-Public Use
  Company Number: TR-STRIDES ARCOLAB LIMITED-2020SP014223

PATIENT
  Age: 52 Year
  Sex: Male

DRUGS (1)
  1. DICLOFENAC [Suspect]
     Active Substance: DICLOFENAC
     Indication: MYALGIA
     Dosage: UNK: INJECTION
     Route: 030

REACTIONS (6)
  - Necrosis [Recovered/Resolved]
  - Ulcer [Recovered/Resolved]
  - Induration [Recovered/Resolved]
  - Scab [Recovered/Resolved]
  - Embolia cutis medicamentosa [Unknown]
  - Skin plaque [Recovered/Resolved]
